FAERS Safety Report 9580231 (Version 2)
Quarter: 2013Q4

REPORT INFORMATION
  Report Type: Spontaneous
  Country: US (occurrence: US)
  Receive Date: 20131002
  Receipt Date: 20131029
  Transmission Date: 20140711
  Serious: Yes (Hospitalization)
  Sender: FDA-Public Use
  Company Number: US-INCYTE CORPORATION-2013IN002232

PATIENT
  Age: 80 Year
  Sex: Male

DRUGS (1)
  1. JAKAFI [Suspect]
     Indication: MYELOFIBROSIS
     Dosage: 10 MG, BID
     Route: 048
     Dates: start: 20130603, end: 20130903

REACTIONS (5)
  - Oedema [Recovering/Resolving]
  - Anaemia [Recovering/Resolving]
  - Portal hypertension [Unknown]
  - Weight decreased [Unknown]
  - Drug ineffective [Unknown]
